FAERS Safety Report 9827468 (Version 4)
Quarter: 2014Q2

REPORT INFORMATION
  Report Type: Spontaneous
  Country: US (occurrence: US)
  Receive Date: 20140117
  Receipt Date: 20140428
  Transmission Date: 20141212
  Serious: No
  Sender: FDA-Public Use
  Company Number: US-GILEAD-2014-0092298

PATIENT
  Sex: Male

DRUGS (2)
  1. LETAIRIS [Suspect]
     Indication: PULMONARY ARTERIAL HYPERTENSION
     Dosage: 10 MG, QD
     Route: 065
     Dates: start: 20130403
  2. REMODULIN [Suspect]

REACTIONS (5)
  - Infusion site pain [Recovered/Resolved]
  - Infusion site erythema [Unknown]
  - Infusion site infection [Unknown]
  - Purulent discharge [Unknown]
  - Infusion site warmth [Unknown]
